FAERS Safety Report 8533228-X (Version None)
Quarter: 2012Q3

REPORT INFORMATION
  Report Type: 
  Country: None (occurrence: None)
  Receive Date: 20120724
  Receipt Date: 20120711
  Transmission Date: 20120928
  Serious: Yes (Hospitalization, Disabling, Other)
  Sender: FDA-Public Use
  Company Number: US-009507513-1202USA02807

PATIENT

DRUGS (8)
  1. TRAZODONE HYDROCHLORIDE [Concomitant]
     Dosage: UNK
     Dates: start: 20060101
  2. FEXOFENADINE HYDROCHLORIDE [Concomitant]
  3. ALENDRONATE SODIUM [Suspect]
     Dosage: 70 MG, QW
     Dates: start: 20080219, end: 20081028
  4. FOSAMAX [Suspect]
     Indication: OSTEOPOROSIS
     Dosage: 70 MG, UNK
     Route: 048
     Dates: start: 20031201, end: 20080201
  5. FOSAMAX [Suspect]
     Dosage: 70 MG, UNK
     Route: 048
     Dates: start: 20081101, end: 20091101
  6. LEXAPRO [Concomitant]
     Dosage: UNK
     Dates: start: 20040101
  7. CYMBALTA [Concomitant]
     Dosage: UNK
  8. SERTRALINE HYDROCHLORIDE [Concomitant]
     Dosage: UNK
     Dates: start: 19960101

REACTIONS (49)
  - PATIENT-DEVICE INCOMPATIBILITY [None]
  - PREMATURE MENOPAUSE [None]
  - HEPATIC CIRRHOSIS [None]
  - BACK PAIN [None]
  - CONSTIPATION [None]
  - DEPRESSION [None]
  - LAPAROSCOPY [None]
  - HYPERTENSION [None]
  - ARTHRITIS [None]
  - CHRONIC OBSTRUCTIVE PULMONARY DISEASE [None]
  - INSOMNIA [None]
  - ADVERSE EVENT [None]
  - NEUTROPENIA [None]
  - FEMUR FRACTURE [None]
  - SINUS DISORDER [None]
  - CHEST PAIN [None]
  - PLANTAR FASCIITIS [None]
  - OBSESSIVE-COMPULSIVE DISORDER [None]
  - HERPES SIMPLEX [None]
  - INGROWING NAIL [None]
  - OEDEMA PERIPHERAL [None]
  - OSTEOPENIA [None]
  - SKIN LESION [None]
  - HAEMORRHOIDS [None]
  - ECZEMA [None]
  - THROMBOCYTOPENIA [None]
  - DYSPEPSIA [None]
  - CHOLECYSTECTOMY [None]
  - ACUTE PULMONARY OEDEMA [None]
  - HOT FLUSH [None]
  - ANXIETY [None]
  - EYE IRRITATION [None]
  - RASH [None]
  - ARTHRALGIA [None]
  - HYSTERECTOMY [None]
  - LOW TURNOVER OSTEOPATHY [None]
  - TOOTH DISORDER [None]
  - SPINAL COMPRESSION FRACTURE [None]
  - URINARY TRACT INFECTION [None]
  - INTERVERTEBRAL DISC DEGENERATION [None]
  - HYPERHIDROSIS [None]
  - PAIN IN EXTREMITY [None]
  - GASTROOESOPHAGEAL REFLUX DISEASE [None]
  - HEPATITIS C [None]
  - CARDIAC MURMUR [None]
  - RENAL APLASIA [None]
  - DERMATITIS ARTEFACTA [None]
  - URINARY RETENTION [None]
  - HEADACHE [None]
